FAERS Safety Report 14235877 (Version 3)
Quarter: 2018Q1

REPORT INFORMATION
  Report Type: Report from Study
  Country: IL (occurrence: IL)
  Receive Date: 20171129
  Receipt Date: 20180131
  Transmission Date: 20180508
  Serious: Yes (Death, Hospitalization)
  Sender: FDA-Public Use
  Company Number: IL-ROCHE-2027508

PATIENT
  Age: 69 Year
  Sex: Male
  Weight: 94.4 kg

DRUGS (18)
  1. NOVORAPID [Concomitant]
     Active Substance: INSULIN ASPART
     Dosage: 0.1 UNIT
     Route: 058
     Dates: start: 2011
  2. MYCOPHENOLATE MOFETIL. [Suspect]
     Active Substance: MYCOPHENOLATE MOFETIL
     Indication: PEMPHIGUS
     Dosage: ON 14/NOV/017, RECEIVED AT UNKNOWN TIME RECEIVED BLINDED MYCOPHENOLATE MOFETIL PRIOR TO THE SERIOUS
     Route: 048
     Dates: start: 20170731
  3. NYSTATIN. [Concomitant]
     Active Substance: NYSTATIN
     Indication: PEMPHIGUS
     Route: 048
     Dates: start: 20170705
  4. GASTRO (FAMOTIDINE) [Concomitant]
     Route: 048
     Dates: start: 20170706
  5. TRITACE [Concomitant]
     Active Substance: RAMIPRIL
     Route: 048
     Dates: start: 20170908
  6. CALTRATE [Concomitant]
     Active Substance: CALCIUM CARBONATE
     Indication: PEMPHIGUS
     Route: 048
     Dates: start: 20170707
  7. DERMOVATE [Concomitant]
     Active Substance: CLOBETASOL
     Indication: PEMPHIGUS
     Route: 065
     Dates: start: 20170718
  8. TARODENT [Concomitant]
     Indication: PEMPHIGUS
     Route: 048
     Dates: start: 20170705
  9. ASPIRIN. [Concomitant]
     Active Substance: ASPIRIN
     Route: 048
     Dates: start: 1997
  10. INSULIN [Concomitant]
     Active Substance: INSULIN NOS
     Dosage: 42 UNIT
     Route: 058
     Dates: start: 200712
  11. VALTREX [Concomitant]
     Active Substance: VALACYCLOVIR HYDROCHLORIDE
     Route: 048
     Dates: start: 20170711
  12. PREDNISONE. [Concomitant]
     Active Substance: PREDNISONE
     Indication: PEMPHIGUS
     Route: 048
     Dates: start: 20171009, end: 20171025
  13. PLACEBO [Suspect]
     Active Substance: UNSPECIFIED INGREDIENT
     Indication: PEMPHIGUS
     Dosage: ON 14/AUG/2017, HE RECEIVED MOST RECENT DOSE BLINDED RITUXIMAB INFUSION AT 12.00 PRIOR TO SERIOUS AD
     Route: 042
     Dates: start: 20170731
  14. CRESTOR [Concomitant]
     Active Substance: ROSUVASTATIN CALCIUM
     Route: 048
     Dates: start: 2014
  15. MAGNOX [Concomitant]
     Route: 048
     Dates: start: 20170904
  16. XARELTO [Concomitant]
     Active Substance: RIVAROXABAN
     Route: 048
     Dates: start: 20170905
  17. PREDNISONE. [Concomitant]
     Active Substance: PREDNISONE
     Route: 048
     Dates: start: 20171026
  18. LANTUS [Concomitant]
     Active Substance: INSULIN GLARGINE
     Dosage: 42 UNIT
     Route: 058
     Dates: start: 200712

REACTIONS (1)
  - Small cell lung cancer [Fatal]

NARRATIVE: CASE EVENT DATE: 20171114
